FAERS Safety Report 23067142 (Version 1)
Quarter: 2023Q4

REPORT INFORMATION
  Report Type: Spontaneous
  Country: NL (occurrence: NL)
  Receive Date: 20231016
  Receipt Date: 20231016
  Transmission Date: 20240110
  Serious: Yes (Hospitalization)
  Sender: FDA-Public Use
  Company Number: NL-MELINTA THERAPEUTICS, LLC-NL-MLNT-23-00561

PATIENT

DRUGS (2)
  1. MINOCIN [Suspect]
     Active Substance: MINOCYCLINE HYDROCHLORIDE
     Indication: Superinfection
     Dosage: 5-DAY COURSE
     Route: 042
  2. MINOCIN [Suspect]
     Active Substance: MINOCYCLINE HYDROCHLORIDE
     Indication: Pneumonia

REACTIONS (3)
  - Leukocytosis [Recovering/Resolving]
  - Pulmonary eosinophilia [Recovering/Resolving]
  - Off label use [Recovering/Resolving]
